FAERS Safety Report 7792165-9 (Version None)
Quarter: 2011Q4

REPORT INFORMATION
  Report Type: 
  Country: None (occurrence: None)
  Receive Date: 20111003
  Receipt Date: 20111003
  Transmission Date: 20120403
  Serious: No
  Sender: FDA-Public Use
  Company Number: None

PATIENT
  Age: 44 Year
  Sex: Male
  Weight: 74.842 kg

DRUGS (1)
  1. BACTROBAN [Suspect]
     Indication: INFLAMMATION
     Dosage: APPLY TO AREA EVERY A.M.
     Route: 061
     Dates: start: 20110927, end: 20110930

REACTIONS (3)
  - EYE PAIN [None]
  - EYE INFLAMMATION [None]
  - EYE SWELLING [None]
